FAERS Safety Report 23699934 (Version 1)
Quarter: 2024Q2

REPORT INFORMATION
  Report Type: Spontaneous
  Country: US (occurrence: None)
  Receive Date: 20240403
  Receipt Date: 20240403
  Transmission Date: 20240716
  Serious: Yes (Other)
  Sender: FDA-Public Use
  Company Number: US-ROCHE-3535483

PATIENT
  Age: 13 Year
  Sex: Male

DRUGS (2)
  1. NUTROPIN AQ [Suspect]
     Active Substance: SOMATROPIN
     Indication: Hypopituitarism
     Route: 058
  2. NUTROPIN AQ [Suspect]
     Active Substance: SOMATROPIN

REACTIONS (3)
  - Nasal obstruction [Unknown]
  - Infection [Unknown]
  - Snoring [Unknown]
